FAERS Safety Report 14340356 (Version 2)
Quarter: 2018Q1

REPORT INFORMATION
  Report Type: Report from Study
  Country: US (occurrence: US)
  Receive Date: 20180101
  Receipt Date: 20180111
  Transmission Date: 20180509
  Serious: Yes (Death)
  Sender: FDA-Public Use
  Company Number: US-ROCHE-2048350

PATIENT
  Age: 95 Year
  Sex: Female

DRUGS (20)
  1. VANCOMYCIN HCL [Concomitant]
     Active Substance: VANCOMYCIN HYDROCHLORIDE
     Route: 065
  2. HYDRALAZINE [Concomitant]
     Active Substance: HYDRALAZINE HYDROCHLORIDE
     Dosage: IV: Q4H
     Route: 042
  3. CIPRO [Concomitant]
     Active Substance: CIPROFLOXACIN HYDROCHLORIDE
     Route: 065
  4. VANCOMYCIN HCL [Concomitant]
     Active Substance: VANCOMYCIN HYDROCHLORIDE
     Route: 042
  5. GUAIFENESIN. [Concomitant]
     Active Substance: GUAIFENESIN
     Route: 065
  6. ONDANSETRON HCL [Concomitant]
     Active Substance: ONDANSETRON HYDROCHLORIDE
  7. SINGULAIR [Concomitant]
     Active Substance: MONTELUKAST SODIUM
     Dosage: HS
     Route: 065
  8. COREG [Concomitant]
     Active Substance: CARVEDILOL
     Route: 065
  9. POTASSIUM CHLORIDE. [Concomitant]
     Active Substance: POTASSIUM CHLORIDE
     Dosage: QAM
     Route: 065
  10. MEROPENEM. [Concomitant]
     Active Substance: MEROPENEM
     Route: 065
  11. MELATONIN [Concomitant]
     Active Substance: MELATONIN
     Route: 065
  12. NORVASC [Concomitant]
     Active Substance: AMLODIPINE BESYLATE
     Dosage: QAM
     Route: 065
  13. ACETAMINOPHEN. [Concomitant]
     Active Substance: ACETAMINOPHEN
     Route: 065
  14. CYANOCOBALAMIN. [Concomitant]
     Active Substance: CYANOCOBALAMIN
     Dosage: IM: Q30 D
     Route: 065
  15. NORMODYNE [Concomitant]
     Active Substance: LABETALOL HYDROCHLORIDE
     Route: 042
  16. ZELBORAF [Suspect]
     Active Substance: VEMURAFENIB
     Indication: MALIGNANT MELANOMA
     Route: 065
     Dates: start: 201701, end: 20171227
  17. SYNTHROID [Concomitant]
     Active Substance: LEVOTHYROXINE SODIUM
     Route: 065
  18. HALFPRIN LOW DOSE [Concomitant]
     Active Substance: ASPIRIN
     Dosage: QAM
     Route: 065
  19. DEXTROSE. [Concomitant]
     Active Substance: DEXTROSE
  20. TYLENOL [Concomitant]
     Active Substance: ACETAMINOPHEN
     Dosage: Q6H
     Route: 065

REACTIONS (9)
  - Breath sounds abnormal [Unknown]
  - Rhonchi [Unknown]
  - Sepsis [Fatal]
  - Metastatic malignant melanoma [Fatal]
  - Conjunctival hyperaemia [Unknown]
  - Pneumonia [Fatal]
  - Influenza [Fatal]
  - Ill-defined disorder [Unknown]
  - Acute kidney injury [Fatal]

NARRATIVE: CASE EVENT DATE: 20171228
